FAERS Safety Report 5528571-2 (Version None)
Quarter: 2007Q4

REPORT INFORMATION
  Report Type: 
  Country: None (occurrence: None)
  Receive Date: 20071123
  Receipt Date: 20071113
  Transmission Date: 20080405
  Serious: Yes (Disabling)
  Sender: FDA-Public Use
  Company Number: 2007S1000285

PATIENT
  Age: 81 Year
  Sex: Male

DRUGS (3)
  1. ACITRETIN [Suspect]
     Indication: PSORIASIS
     Dosage: 20 MG;PO
     Route: 048
     Dates: start: 20060601, end: 20070701
  2. ATORVASTATIN [Concomitant]
  3. PANTOPRAZOLE SODIUM [Concomitant]

REACTIONS (3)
  - DEPRESSION [None]
  - FATIGUE [None]
  - PSYCHIATRIC SYMPTOM [None]
